FAERS Safety Report 8143367-3 (Version None)
Quarter: 2012Q1

REPORT INFORMATION
  Report Type: 
  Country: None (occurrence: None)
  Receive Date: 20120217
  Receipt Date: 20120206
  Transmission Date: 20120608
  Serious: Yes (Hospitalization, Other)
  Sender: FDA-Public Use
  Company Number: US-JNJFOC-20120204313

PATIENT
  Sex: Female
  Weight: 43.09 kg

DRUGS (7)
  1. METHOTREXATE [Concomitant]
     Indication: PSORIATIC ARTHROPATHY
     Dosage: 8 TABS OF 2.5 MG
     Route: 048
  2. REMICADE [Suspect]
     Indication: PSORIATIC ARTHROPATHY
     Route: 042
     Dates: end: 20110827
  3. MOBIC [Concomitant]
     Indication: INFLAMMATION
     Route: 048
  4. REMICADE [Suspect]
     Route: 042
     Dates: start: 20070101, end: 20100101
  5. REMICADE [Suspect]
     Route: 042
     Dates: start: 20110101
  6. PREDNISONE TAB [Concomitant]
     Indication: PSORIATIC ARTHROPATHY
     Route: 048
     Dates: end: 20110101
  7. REMICADE [Suspect]
     Route: 042
     Dates: start: 20110101

REACTIONS (8)
  - SPINAL DISORDER [None]
  - MUSCLE SPASMS [None]
  - PAIN [None]
  - PSORIATIC ARTHROPATHY [None]
  - CERVICAL VERTEBRAL FRACTURE [None]
  - DRUG INEFFECTIVE [None]
  - ANXIETY [None]
  - HAND DEFORMITY [None]
